FAERS Safety Report 18884301 (Version 3)
Quarter: 2021Q1

REPORT INFORMATION
  Report Type: Other
  Country: GB (occurrence: GB)
  Receive Date: 20210211
  Receipt Date: 20210301
  Transmission Date: 20210420
  Serious: Yes (Hospitalization)
  Sender: FDA-Public Use
  Company Number: GB-CELLTRION INC.-2021GB001555

PATIENT

DRUGS (2)
  1. REMSIMA [Suspect]
     Active Substance: INFLIXIMAB
     Indication: PRODUCT USED FOR UNKNOWN INDICATION
     Dosage: 120 MG, FIRST INFUSION
     Route: 065
     Dates: start: 20210127
  2. REMSIMA [Suspect]
     Active Substance: INFLIXIMAB
     Dosage: 120 MG, LAST INFUSION
     Route: 065
     Dates: start: 20210127

REACTIONS (4)
  - Frequent bowel movements [Unknown]
  - Pain [Unknown]
  - Rectal haemorrhage [Unknown]
  - Condition aggravated [Not Recovered/Not Resolved]
